FAERS Safety Report 11589983 (Version 2)
Quarter: 2018Q1

REPORT INFORMATION
  Report Type: Spontaneous
  Country: US (occurrence: US)
  Receive Date: 20151002
  Receipt Date: 20180202
  Transmission Date: 20180508
  Serious: Yes (Other)
  Sender: FDA-Public Use
  Company Number: US-TEVA-597364USA

PATIENT
  Sex: Male

DRUGS (1)
  1. FENTANYL. [Suspect]
     Active Substance: FENTANYL
     Indication: PRODUCT USED FOR UNKNOWN INDICATION
     Route: 065
     Dates: start: 2003, end: 20110404

REACTIONS (8)
  - Tooth discolouration [Unknown]
  - Tooth fracture [Unknown]
  - Product label issue [Unknown]
  - Product counterfeit [Unknown]
  - Product packaging issue [Unknown]
  - Tooth loss [Unknown]
  - Tooth extraction [Unknown]
  - Tooth infection [Unknown]
